FAERS Safety Report 20373261 (Version 1)
Quarter: 2022Q1

REPORT INFORMATION
  Report Type: Spontaneous
  Country: US (occurrence: US)
  Receive Date: 20220125
  Receipt Date: 20220125
  Transmission Date: 20220424
  Serious: No
  Sender: FDA-Public Use
  Company Number: US-drreddys-SPO/USA/22/0145999

PATIENT
  Age: 17 Year
  Sex: Female
  Weight: 110 kg

DRUGS (2)
  1. ACCUTANE [Suspect]
     Active Substance: ISOTRETINOIN
     Indication: Product used for unknown indication
     Dosage: RMA ISSUE DATE: 10/DECEMBER/2021 12:00:00 AM AND 10/NOVEMBER/2021 12:00:00 AM
     Route: 048
  2. ACCUTANE [Suspect]
     Active Substance: ISOTRETINOIN
     Dosage: RMA ISSUE DATE: 8/OCTOBER/2021 12:00:00 AM
     Route: 048

REACTIONS (1)
  - Dry skin [Unknown]
